FAERS Safety Report 23702392 (Version 1)
Quarter: 2024Q2

REPORT INFORMATION
  Report Type: Spontaneous
  Country: US (occurrence: US)
  Receive Date: 20240403
  Receipt Date: 20240403
  Transmission Date: 20240716
  Serious: Yes (Other)
  Sender: FDA-Public Use
  Company Number: US-ORGANON-O2404USA000044

PATIENT
  Sex: Female

DRUGS (2)
  1. NEXPLANON [Suspect]
     Active Substance: ETONOGESTREL
     Indication: Contraception
     Dosage: 1 IMPLANT
     Route: 059
     Dates: start: 20210826
  2. NEXPLANON [Concomitant]
     Active Substance: ETONOGESTREL
     Indication: Contraception
     Dosage: 1 IMPLANT
     Route: 059
     Dates: end: 20210826

REACTIONS (8)
  - Device dislocation [Not Recovered/Not Resolved]
  - Libido decreased [Unknown]
  - Depression [Unknown]
  - Mood swings [Unknown]
  - Complication associated with device [Not Recovered/Not Resolved]
  - Skin discolouration [Unknown]
  - Vein disorder [Unknown]
  - Pigmentation disorder [Unknown]
